FAERS Safety Report 20884087 (Version 1)
Quarter: 2022Q2

REPORT INFORMATION
  Report Type: Report from Study
  Country: AU (occurrence: AU)
  Receive Date: 20220527
  Receipt Date: 20220527
  Transmission Date: 20220721
  Serious: Yes (Hospitalization)
  Sender: FDA-Public Use
  Company Number: AU-PFIZER INC-202200743852

PATIENT
  Age: 75 Year
  Sex: Male
  Weight: 62 kg

DRUGS (3)
  1. PALBOCICLIB [Suspect]
     Active Substance: PALBOCICLIB
     Indication: Cholangiocarcinoma
     Dosage: 125 MG, 147 DAYS - CYCLE 5
     Route: 048
     Dates: start: 20211214, end: 20220510
  2. AVELUMAB [Suspect]
     Active Substance: AVELUMAB
     Indication: Cholangiocarcinoma
     Dosage: 700 MG, 98 DAYS - CYCLE 5
     Route: 042
     Dates: start: 20220111, end: 20220419
  3. INDAPAMIDE\PERINDOPRIL [Concomitant]
     Active Substance: INDAPAMIDE\PERINDOPRIL
     Indication: Chronic disease
     Dosage: 5 MG, ONCE A DAY
     Route: 048

REACTIONS (1)
  - Hepatobiliary procedural complication [Recovered/Resolved]

NARRATIVE: CASE EVENT DATE: 20220503
